FAERS Safety Report 6112669-4 (Version None)
Quarter: 2009Q1

REPORT INFORMATION
  Report Type: 
  Country: None (occurrence: None)
  Receive Date: 20090312
  Receipt Date: 20090303
  Transmission Date: 20090719
  Serious: Yes (Death)
  Sender: FDA-Public Use
  Company Number: GB-BAXTER-2008BH013513

PATIENT
  Age: 64 Year
  Sex: Female

DRUGS (28)
  1. CYCLOPHOSPHAMIDE [Suspect]
     Indication: DIFFUSE LARGE B-CELL LYMPHOMA
     Dosage: DOSE UNIT:UNKNOWN
     Route: 065
     Dates: start: 20071219, end: 20080518
  2. CYCLOPHOSPHAMIDE [Suspect]
     Indication: NON-HODGKIN'S LYMPHOMA
     Dosage: DOSE UNIT:UNKNOWN
     Route: 065
     Dates: start: 20071219, end: 20080518
  3. DOXORUBICIN HCL [Suspect]
     Indication: DIFFUSE LARGE B-CELL LYMPHOMA
     Dosage: DOSE UNIT:UNKNOWN
     Route: 065
     Dates: start: 20071219, end: 20080518
  4. DOXORUBICIN HCL [Suspect]
     Indication: NON-HODGKIN'S LYMPHOMA
     Dosage: DOSE UNIT:UNKNOWN
     Route: 065
     Dates: start: 20071219, end: 20080518
  5. PREDNISONE [Suspect]
     Indication: NON-HODGKIN'S LYMPHOMA
     Dosage: DOSE UNIT:UNKNOWN
     Route: 065
     Dates: start: 20071219, end: 20080518
  6. RITUXIMAB [Suspect]
     Indication: DIFFUSE LARGE B-CELL LYMPHOMA
     Dosage: DOSE UNIT:UNKNOWN
     Route: 065
     Dates: start: 20080301, end: 20080518
  7. RITUXIMAB [Suspect]
     Indication: NON-HODGKIN'S LYMPHOMA
     Dosage: DOSE UNIT:UNKNOWN
     Route: 065
     Dates: start: 20080301, end: 20080518
  8. RITUXIMAB [Suspect]
     Dosage: DOSE UNIT:UNKNOWN
     Route: 065
     Dates: start: 20080301, end: 20080518
  9. RITUXIMAB [Suspect]
     Dosage: DOSE UNIT:UNKNOWN
     Route: 065
     Dates: start: 20080301, end: 20080518
  10. RITUXIMAB [Suspect]
     Dosage: DOSE UNIT:UNKNOWN
     Route: 065
     Dates: start: 20080301, end: 20080518
  11. RITUXIMAB [Suspect]
     Dosage: DOSE UNIT:UNKNOWN
     Route: 065
     Dates: start: 20080301, end: 20080518
  12. RITUXIMAB [Suspect]
     Dosage: DOSE UNIT:UNKNOWN
     Route: 065
     Dates: start: 20080301, end: 20080518
  13. RITUXIMAB [Suspect]
     Dosage: DOSE UNIT:UNKNOWN
     Route: 065
     Dates: start: 20080301, end: 20080518
  14. RITUXIMAB [Suspect]
     Dosage: DOSE UNIT:UNKNOWN
     Route: 065
     Dates: start: 20080301, end: 20080518
  15. RITUXIMAB [Suspect]
     Dosage: DOSE UNIT:UNKNOWN
     Route: 065
     Dates: start: 20080301, end: 20080518
  16. RITUXIMAB [Suspect]
     Dosage: DOSE UNIT:UNKNOWN
     Route: 065
     Dates: start: 20080301, end: 20080518
  17. RITUXIMAB [Suspect]
     Dosage: DOSE UNIT:UNKNOWN
     Route: 065
     Dates: start: 20080301, end: 20080518
  18. VINCRISTINE SULFATE [Suspect]
     Indication: DIFFUSE LARGE B-CELL LYMPHOMA
     Dosage: DOSE UNIT:UNKNOWN
     Route: 065
     Dates: start: 20071219, end: 20080518
  19. VINCRISTINE SULFATE [Suspect]
     Indication: NON-HODGKIN'S LYMPHOMA
     Dosage: DOSE UNIT:UNKNOWN
     Route: 065
     Dates: start: 20071219, end: 20080518
  20. METHOTREXATE [Suspect]
     Indication: NON-HODGKIN'S LYMPHOMA
     Route: 037
     Dates: start: 20080314, end: 20080518
  21. AMLODIPINE [Concomitant]
  22. FLUCONAZOLE [Concomitant]
  23. FOLINIC ACID [Concomitant]
  24. GANCICLOVIR [Concomitant]
  25. LANSOPRAZOLE [Concomitant]
  26. SIMVASTATIN [Concomitant]
  27. SULPHAMETHOXAZOLE [Concomitant]
  28. TRIMETHOPRIM [Concomitant]

REACTIONS (1)
  - LEUKOENCEPHALOPATHY [None]
